FAERS Safety Report 16123863 (Version 2)
Quarter: 2019Q2

REPORT INFORMATION
  Report Type: Spontaneous
  Country: BR (occurrence: BR)
  Receive Date: 20190327
  Receipt Date: 20190415
  Transmission Date: 20190711
  Serious: Yes (Death, Hospitalization)
  Sender: FDA-Public Use
  Company Number: BR-PFIZER INC-2019130736

PATIENT
  Age: 92 Year
  Sex: Female

DRUGS (2)
  1. FELDENE [Suspect]
     Active Substance: PIROXICAM
     Indication: OSTEOARTHRITIS
     Dosage: UNK
     Route: 061
  2. FELDENE [Suspect]
     Active Substance: PIROXICAM
     Indication: PAIN
     Dosage: UNK

REACTIONS (2)
  - Cholelithiasis [Fatal]
  - Systemic infection [Fatal]

NARRATIVE: CASE EVENT DATE: 2010
